FAERS Safety Report 16599162 (Version 8)
Quarter: 2024Q4

REPORT INFORMATION
  Report Type: Spontaneous
  Country: US (occurrence: US)
  Receive Date: 20190719
  Receipt Date: 20241231
  Transmission Date: 20250115
  Serious: Yes (Other)
  Sender: PFIZER
  Company Number: US-PFIZER INC-2019305093

PATIENT
  Age: 80 Year
  Sex: Female
  Weight: 74 kg

DRUGS (4)
  1. XELJANZ [Suspect]
     Active Substance: TOFACITINIB CITRATE
     Indication: Rheumatoid arthritis
     Dosage: 5 MG, 1X/DAY
     Route: 048
  2. XELJANZ [Suspect]
     Active Substance: TOFACITINIB CITRATE
     Indication: Osteoarthritis
     Dosage: 5 MG PO (PER ORAL) BID (TWICE A DAY)
     Route: 048
  3. XELJANZ [Suspect]
     Active Substance: TOFACITINIB CITRATE
     Indication: Liver function test increased
     Dosage: 5 MG, DAILY
  4. XELJANZ [Suspect]
     Active Substance: TOFACITINIB CITRATE
     Indication: Immunosuppression

REACTIONS (10)
  - Spinal compression fracture [Unknown]
  - Fracture [Unknown]
  - Product dispensing error [Unknown]
  - Product prescribing issue [Unknown]
  - Off label use [Unknown]
  - Cystitis [Recovered/Resolved]
  - Disease recurrence [Recovered/Resolved]
  - Weight increased [Recovered/Resolved]
  - Pruritus [Unknown]
  - Influenza [Unknown]

NARRATIVE: CASE EVENT DATE: 20190719
